FAERS Safety Report 6325023-7 (Version None)
Quarter: 2009Q3

REPORT INFORMATION
  Report Type: 
  Country: None (occurrence: None)
  Receive Date: 20090824
  Receipt Date: 20090616
  Transmission Date: 20100115
  Serious: Yes (Other)
  Sender: FDA-Public Use
  Company Number: US-ABBOTT-09P-163-0580241-00

PATIENT
  Sex: Male

DRUGS (13)
  1. NIASPAN [Suspect]
     Indication: BLOOD CHOLESTEROL INCREASED
     Route: 048
     Dates: start: 20090608, end: 20090617
  2. NIASPAN [Suspect]
     Indication: BLOOD TRIGLYCERIDES INCREASED
  3. ASPIRIN [Concomitant]
     Indication: PROPHYLAXIS
     Route: 048
  4. ASPIRIN [Concomitant]
     Indication: CARDIAC DISORDER
  5. DEPAKOTE [Concomitant]
     Indication: BIPOLAR DISORDER
  6. SEROQUEL [Concomitant]
     Indication: BIPOLAR DISORDER
  7. HYZAAR [Concomitant]
     Indication: HYPERTENSION
  8. DICYCLOMINE [Concomitant]
     Indication: IRRITABLE BOWEL SYNDROME
  9. OXYBUTYNIN CHLORIDE [Concomitant]
     Indication: IRRITABLE BOWEL SYNDROME
  10. OMEPRAZOLE [Concomitant]
     Indication: GASTROOESOPHAGEAL REFLUX DISEASE
  11. POTASSIUM CHLORIDE [Concomitant]
     Indication: ARTHRITIS
  12. CLARITIN-D [Concomitant]
     Indication: HYPERSENSITIVITY
  13. MULTIPLE VITAMINS [Concomitant]
     Indication: ROUTINE HEALTH MAINTENANCE

REACTIONS (4)
  - FEELING HOT [None]
  - GENERALISED ERYTHEMA [None]
  - PRURITUS [None]
  - RASH PAPULAR [None]
